FAERS Safety Report 18234577 (Version 1)
Quarter: 2020Q3

REPORT INFORMATION
  Report Type: Spontaneous
  Country: DE (occurrence: DE)
  Receive Date: 20200904
  Receipt Date: 20200904
  Transmission Date: 20201103
  Serious: Yes (Hospitalization)
  Sender: FDA-Public Use
  Company Number: DE-ELI_LILLY_AND_COMPANY-DE202007010939

PATIENT
  Age: 55 Year
  Sex: Male
  Weight: 99 kg

DRUGS (3)
  1. OLUMIANT [Suspect]
     Active Substance: BARICITINIB
     Indication: RHEUMATOID ARTHRITIS
     Dosage: 4 MG, DAILY
     Route: 048
     Dates: start: 20181112
  2. OLUMIANT [Suspect]
     Active Substance: BARICITINIB
     Dosage: 2 MG, DAILY
     Route: 048
     Dates: start: 201907, end: 20200701
  3. OLUMIANT [Suspect]
     Active Substance: BARICITINIB
     Dosage: 2 MG, DAILY
     Route: 048
     Dates: start: 20190801, end: 20191031

REACTIONS (8)
  - Polydipsia [Unknown]
  - Dehydration [Not Recovered/Not Resolved]
  - Thirst [Unknown]
  - Blood sodium increased [Not Recovered/Not Resolved]
  - Diabetes insipidus [Not Recovered/Not Resolved]
  - Pollakiuria [Unknown]
  - Asthenia [Unknown]
  - Blood antidiuretic hormone decreased [Not Recovered/Not Resolved]

NARRATIVE: CASE EVENT DATE: 201906
